FAERS Safety Report 5439304-2 (Version None)
Quarter: 2007Q3

REPORT INFORMATION
  Report Type: 
  Country: None (occurrence: None)
  Receive Date: 20070831
  Receipt Date: 20070823
  Transmission Date: 20080115
  Serious: Yes (Hospitalization)
  Sender: FDA-Public Use
  Company Number: US-ELI_LILLY_AND_COMPANY-US200708005536

PATIENT
  Sex: Female

DRUGS (24)
  1. HUMULIN 70/30 [Suspect]
     Dosage: 20 ML, EACH MORNING
     Dates: start: 20051001
  2. HUMULIN 70/30 [Suspect]
     Dosage: 20 ML, EACH EVENING
     Dates: start: 20051001
  3. SYMLIN [Concomitant]
     Dosage: 20 MG, UNK
  4. COREG [Concomitant]
     Dosage: 12.5 MG, DAILY (1/D)
  5. OMEPRAZOLE [Concomitant]
     Dosage: 20 MG, EACH MORNING
  6. HYDROCHLOROTHIAZIDE [Concomitant]
     Dosage: 12.5 MG, 2/D
  7. CALCIUM [Concomitant]
  8. METFORMIN HCL [Concomitant]
     Dosage: 500 MG, 2/D
  9. PLAVIX [Concomitant]
     Dosage: 75 MG, EACH MORNING
  10. BUSPIRONE [Concomitant]
     Dosage: 10 MG, 2/D
  11. ZOLOFT [Concomitant]
     Dosage: 50 MG, 2/D
  12. LASIX [Concomitant]
     Dosage: 40 MG, UNK
  13. ISOSORBIDE DINITRATE [Concomitant]
     Dosage: 30 MG/KG, EACH MORNING
  14. NIACIN [Concomitant]
     Dosage: 500 MG, EACH EVENING
  15. TRAZODONE HCL [Concomitant]
     Dosage: 150 MG, EACH EVENING
  16. VYTORIN [Concomitant]
     Dosage: 10 MG, UNK
  17. VYTORIN [Concomitant]
     Dosage: 80 MG, UNK
  18. METHIMAZOLE [Concomitant]
     Dosage: 0.5 MG, QOD
  19. NITROGLYCERIN [Concomitant]
     Dosage: 0.4 MG, AS NEEDED
  20. NASAL SPRAY [Concomitant]
  21. ALBUTEROL [Concomitant]
  22. IPRATROPIUM BROMIDE [Concomitant]
  23. PULMICORT [Concomitant]
     Dosage: 0.25 MG, UNK
  24. COMBIVENT [Concomitant]

REACTIONS (6)
  - BLOOD GLUCOSE INCREASED [None]
  - CATARACT [None]
  - CHRONIC OBSTRUCTIVE PULMONARY DISEASE [None]
  - HYPOACUSIS [None]
  - MEMORY IMPAIRMENT [None]
  - MYOCARDIAL INFARCTION [None]
